FAERS Safety Report 8797700 (Version 2)
Quarter: 2013Q1

REPORT INFORMATION
  Report Type: Spontaneous
  Country: US (occurrence: US)
  Receive Date: 20120920
  Receipt Date: 20130115
  Transmission Date: 20140127
  Serious: No
  Sender: FDA-Public Use
  Company Number: US-009507513-1209USA007113

PATIENT
  Sex: Male

DRUGS (4)
  1. JANUMET XR [Suspect]
     Indication: TYPE 2 DIABETES MELLITUS
     Dosage: 50/1000 MG, BID
     Route: 048
     Dates: start: 201205
  2. JANUMET XR [Suspect]
     Dosage: 100/1000 MG, QD
     Route: 048
  3. JANUMET [Suspect]
     Indication: TYPE 2 DIABETES MELLITUS
     Route: 048
  4. LISINOPRIL [Concomitant]

REACTIONS (1)
  - Blood glucose increased [Not Recovered/Not Resolved]
